FAERS Safety Report 9507128 (Version 1)
Quarter: 2013Q3

REPORT INFORMATION
  Report Type: Spontaneous
  Country: GB (occurrence: None)
  Receive Date: 20130904
  Receipt Date: 20130904
  Transmission Date: 20140515
  Serious: Yes (Other)
  Sender: FDA-Public Use
  Company Number: 2012GR_BP003334

PATIENT
  Age: 85 Year
  Sex: Male

DRUGS (5)
  1. FINASTERIDE [Suspect]
     Route: 048
     Dates: start: 20120405, end: 20120411
  2. CARBAMAZEPINE [Suspect]
  3. DOXAZOSIN (DOXAZOSIN) [Suspect]
  4. TAMSULOSIN (TAMSULOSIN) [Concomitant]
  5. ASPIRIN (ASPIRIN) [Concomitant]

REACTIONS (1)
  - Atrial flutter [None]
